FAERS Safety Report 16283287 (Version 3)
Quarter: 2021Q1

REPORT INFORMATION
  Report Type: Spontaneous
  Country: US (occurrence: US)
  Receive Date: 20190507
  Receipt Date: 20210218
  Transmission Date: 20210419
  Serious: Yes (Hospitalization, Other)
  Sender: FDA-Public Use
  Company Number: US-ASTRAZENECA-2019SE62488

PATIENT
  Sex: Male
  Weight: 131.5 kg

DRUGS (56)
  1. NEXIUM [Suspect]
     Active Substance: ESOMEPRAZOLE MAGNESIUM
     Indication: GASTROOESOPHAGEAL REFLUX DISEASE
     Route: 048
     Dates: start: 200401, end: 201412
  2. NEXIUM 24HR [Suspect]
     Active Substance: ESOMEPRAZOLE MAGNESIUM
     Indication: GASTROOESOPHAGEAL REFLUX DISEASE
     Route: 048
     Dates: start: 2014, end: 2017
  3. PREVACID [Suspect]
     Active Substance: LANSOPRAZOLE
     Indication: GASTROOESOPHAGEAL REFLUX DISEASE
     Route: 065
     Dates: start: 2004, end: 2012
  4. GABAPENTIN. [Concomitant]
     Active Substance: GABAPENTIN
     Indication: NEURALGIA
     Dates: start: 201808
  5. SERTRALINE [Concomitant]
     Active Substance: SERTRALINE HYDROCHLORIDE
  6. FLOVENT [Concomitant]
     Active Substance: FLUTICASONE PROPIONATE
  7. GENTAMICIN. [Concomitant]
     Active Substance: GENTAMICIN
  8. PROMETHAZINE [Concomitant]
     Active Substance: PROMETHAZINE HYDROCHLORIDE
  9. IRON [Concomitant]
     Active Substance: IRON
  10. PERCOCET [Concomitant]
     Active Substance: ACETAMINOPHEN\OXYCODONE HYDROCHLORIDE
  11. NUCYNTA [Concomitant]
     Active Substance: TAPENTADOL HYDROCHLORIDE
  12. POTASSIUM [Concomitant]
     Active Substance: POTASSIUM
  13. SYMBICORT [Concomitant]
     Active Substance: BUDESONIDE\FORMOTEROL FUMARATE DIHYDRATE
  14. PREDNISONE. [Concomitant]
     Active Substance: PREDNISONE
     Indication: INFLAMMATION
     Dates: start: 201612
  15. DOXAZOSIN [Concomitant]
     Active Substance: DOXAZOSIN MESYLATE
     Indication: HYPERTENSION
     Dates: start: 201505
  16. ZOLPIDEM [Concomitant]
     Active Substance: ZOLPIDEM TARTRATE
  17. BACTRIM [Concomitant]
     Active Substance: SULFAMETHOXAZOLE\TRIMETHOPRIM
  18. KLONOPIN [Concomitant]
     Active Substance: CLONAZEPAM
  19. PRILOSEC [Suspect]
     Active Substance: OMEPRAZOLE MAGNESIUM
     Indication: GASTROOESOPHAGEAL REFLUX DISEASE
     Route: 048
     Dates: start: 2017, end: 2019
  20. METOPROLOL. [Concomitant]
     Active Substance: METOPROLOL
     Dates: start: 201506
  21. PEPCID [Concomitant]
     Active Substance: FAMOTIDINE
     Dosage: OTC
     Dates: start: 2015
  22. ROLAIDS [Concomitant]
     Active Substance: CALCIUM CARBONATE\MAGNESIUM HYDROXIDE
     Dates: start: 1990
  23. BRILINTA [Concomitant]
     Active Substance: TICAGRELOR
  24. DOXYCYCLINE HYCLATE. [Concomitant]
     Active Substance: DOXYCYCLINE HYCLATE
  25. WARFARIN [Concomitant]
     Active Substance: WARFARIN
  26. NEXIUM [Suspect]
     Active Substance: ESOMEPRAZOLE MAGNESIUM
     Indication: GASTROOESOPHAGEAL REFLUX DISEASE
     Route: 048
     Dates: start: 2004, end: 2014
  27. LASIX [Concomitant]
     Active Substance: FUROSEMIDE
     Indication: MUSCLE SPASMS
     Dates: start: 2010
  28. ASPIRIN. [Concomitant]
     Active Substance: ASPIRIN
     Indication: ANTICOAGULANT THERAPY
     Dates: start: 1996
  29. BENICAR [Concomitant]
     Active Substance: OLMESARTAN MEDOXOMIL
  30. PLETAL [Concomitant]
     Active Substance: CILOSTAZOL
  31. METOPROLOL TARTRATE. [Concomitant]
     Active Substance: METOPROLOL TARTRATE
  32. PANTOPRAZOLE [Suspect]
     Active Substance: PANTOPRAZOLE
     Indication: GASTROOESOPHAGEAL REFLUX DISEASE
     Dosage: GENERIC
     Route: 065
     Dates: start: 201807, end: 201906
  33. ALBUTEROL. [Concomitant]
     Active Substance: ALBUTEROL
     Indication: ASTHMA
     Dates: start: 2015
  34. POTASSIUM [Concomitant]
     Active Substance: POTASSIUM
     Indication: HYPOKALAEMIA
     Dates: start: 2015
  35. PEPCID [Concomitant]
     Active Substance: FAMOTIDINE
     Dosage: FAMOTIDINE
     Dates: start: 201502, end: 201712
  36. CILOSTAZOL. [Concomitant]
     Active Substance: CILOSTAZOL
  37. BROVANA [Concomitant]
     Active Substance: ARFORMOTEROL TARTRATE
  38. MIRALAX [Concomitant]
     Active Substance: POLYETHYLENE GLYCOL 3350
  39. ADVAIR DISKUS [Concomitant]
     Active Substance: FLUTICASONE PROPIONATE\SALMETEROL XINAFOATE
  40. PRILOSEC [Suspect]
     Active Substance: OMEPRAZOLE MAGNESIUM
     Indication: GASTROOESOPHAGEAL REFLUX DISEASE
     Dosage: GENERIC
     Route: 065
     Dates: start: 201708, end: 201803
  41. ALKA?SELTZER [Concomitant]
     Active Substance: ANHYDROUS CITRIC ACID\ASPIRIN\SODIUM BICARBONATE
     Dates: start: 1990
  42. ANORO ELLIPTA [Concomitant]
     Active Substance: UMECLIDINIUM BROMIDE\VILANTEROL TRIFENATATE
  43. CEPHALEXIN. [Concomitant]
     Active Substance: CEPHALEXIN
  44. ALBUTEROL SULFATE. [Concomitant]
     Active Substance: ALBUTEROL SULFATE
  45. NITROSTAT [Concomitant]
     Active Substance: NITROGLYCERIN
  46. ZOLOFT [Concomitant]
     Active Substance: SERTRALINE HYDROCHLORIDE
  47. TIZANIDINE. [Concomitant]
     Active Substance: TIZANIDINE
  48. SPIRIVA [Concomitant]
     Active Substance: TIOTROPIUM BROMIDE MONOHYDRATE
  49. AZITHROMYCIN ANHYDROUS. [Concomitant]
     Active Substance: AZITHROMYCIN ANHYDROUS
  50. HYDROCODONE/ACETAMINOPHEN [Concomitant]
     Active Substance: ACETAMINOPHEN\HYDROCODONE
  51. LISINOPRIL. [Concomitant]
     Active Substance: LISINOPRIL
  52. NEXIUM [Suspect]
     Active Substance: ESOMEPRAZOLE MAGNESIUM
     Indication: GASTROOESOPHAGEAL REFLUX DISEASE
     Dosage: GENERIC
     Route: 065
     Dates: start: 2015, end: 2017
  53. MONTELUKAST [Concomitant]
     Active Substance: MONTELUKAST SODIUM
     Indication: SINUS DISORDER
     Dates: start: 2018
  54. VALSARTAN. [Concomitant]
     Active Substance: VALSARTAN
  55. AMOXICILLIN. [Concomitant]
     Active Substance: AMOXICILLIN
  56. DICYCLOMINE [Concomitant]
     Active Substance: DICYCLOMINE HYDROCHLORIDE

REACTIONS (6)
  - Chronic kidney disease [Not Recovered/Not Resolved]
  - Renal failure [Unknown]
  - Nephrogenic anaemia [Unknown]
  - End stage renal disease [Not Recovered/Not Resolved]
  - Acute kidney injury [Unknown]
  - Renal tubular necrosis [Unknown]
